FAERS Safety Report 7060553-4 (Version None)
Quarter: 2010Q4

REPORT INFORMATION
  Report Type: 
  Country: None (occurrence: None)
  Receive Date: 20101025
  Receipt Date: 20101012
  Transmission Date: 20110411
  Serious: Yes (Hospitalization)
  Sender: FDA-Public Use
  Company Number: US-ELI_LILLY_AND_COMPANY-US201010002789

PATIENT
  Sex: Female

DRUGS (1)
  1. FORTEO [Suspect]

REACTIONS (3)
  - ARTHROPATHY [None]
  - EYE DISORDER [None]
  - HOSPITALISATION [None]
